FAERS Safety Report 5476963-2 (Version None)
Quarter: 2007Q4

REPORT INFORMATION
  Report Type: 
  Country: None (occurrence: None)
  Receive Date: 20071004
  Receipt Date: 20070925
  Transmission Date: 20080405
  Serious: Yes (Hospitalization, Other)
  Sender: FDA-Public Use
  Company Number: JP-ABBOTT-07P-087-0418279-00

PATIENT
  Age: 4 Year
  Sex: Male

DRUGS (11)
  1. CYCLOSPORINE [Suspect]
     Indication: GLOMERULOSCLEROSIS
  2. METHYLPREDNISOLONE [Concomitant]
     Indication: GLOMERULOSCLEROSIS
  3. METHYLPREDNISOLONE [Concomitant]
  4. METHYLPREDNISOLONE [Concomitant]
  5. PREDNISOLONE [Concomitant]
     Indication: GLOMERULOSCLEROSIS
     Route: 042
  6. PREDNISOLONE [Concomitant]
  7. ADALAT [Concomitant]
     Indication: DRUG USE FOR UNKNOWN INDICATION
  8. CANDESARTAN CILEXETIL [Concomitant]
     Indication: DRUG USE FOR UNKNOWN INDICATION
  9. MAGNESIUM SULFATE [Concomitant]
     Indication: CONVULSION PROPHYLAXIS
  10. MIZORIBINE [Concomitant]
     Indication: GLOMERULOSCLEROSIS
  11. PHENOBARBITAL TAB [Concomitant]
     Indication: DRUG USE FOR UNKNOWN INDICATION
     Dosage: NOT REPORTED

REACTIONS (1)
  - LEUKOENCEPHALOPATHY [None]
